FAERS Safety Report 15620501 (Version 1)
Quarter: 2018Q4

REPORT INFORMATION
  Report Type: Other
  Country: ES (occurrence: ES)
  Receive Date: 20181115
  Receipt Date: 20181115
  Transmission Date: 20190205
  Serious: Yes (Life-Threatening, Hospitalization, Other)
  Sender: FDA-Public Use
  Company Number: ES-APOTEX-2018AP024217

PATIENT
  Age: 78 Year
  Sex: Male
  Weight: 72 kg

DRUGS (6)
  1. SIMVASTATINA [Concomitant]
     Active Substance: SIMVASTATIN
     Indication: HYPERCHOLESTEROLAEMIA
     Dosage: 20 MG, UNK
     Route: 048
  2. FUROSEMIDA                         /00032601/ [Concomitant]
     Active Substance: FUROSEMIDE
     Indication: RENOVASCULAR HYPERTENSION
     Dosage: 40 MG, QD
     Route: 048
  3. ALOPURINOL [Concomitant]
     Active Substance: ALLOPURINOL
     Indication: HYPERURICAEMIA
     Dosage: 300 MG, QD
     Route: 048
  4. METFORMIN [Suspect]
     Active Substance: METFORMIN HYDROCHLORIDE
     Indication: TYPE 2 DIABETES MELLITUS
     Dosage: 850 MG, Q.12H
     Route: 048
     Dates: start: 20160829, end: 20180101
  5. LOSARTAN. [Concomitant]
     Active Substance: LOSARTAN
     Indication: RENOVASCULAR HYPERTENSION
     Dosage: 100 MG, QD
     Route: 048
  6. CARVEDILOL. [Concomitant]
     Active Substance: CARVEDILOL
     Indication: RENOVASCULAR HYPERTENSION
     Dosage: 25 MG, Q.12H
     Route: 048

REACTIONS (2)
  - Acute kidney injury [Unknown]
  - Lactic acidosis [Recovered/Resolved]

NARRATIVE: CASE EVENT DATE: 20171231
